FAERS Safety Report 6104677-4 (Version None)
Quarter: 2009Q1

REPORT INFORMATION
  Report Type: 
  Country: None (occurrence: None)
  Receive Date: 20090303
  Receipt Date: 20090224
  Transmission Date: 20090719
  Serious: Yes (Death, Hospitalization)
  Sender: FDA-Public Use
  Company Number: 2009US000518

PATIENT
  Age: 84 Year
  Sex: Male

DRUGS (1)
  1. VESICARE [Suspect]
     Indication: URGE INCONTINENCE
     Dates: start: 20080101, end: 20090123

REACTIONS (7)
  - APHAGIA [None]
  - CYSTITIS [None]
  - MASTICATION DISORDER [None]
  - MEMORY IMPAIRMENT [None]
  - PNEUMONIA [None]
  - REFUSAL OF TREATMENT BY PATIENT [None]
  - UNEVALUABLE EVENT [None]
